FAERS Safety Report 5572935-8 (Version None)
Quarter: 2007Q4

REPORT INFORMATION
  Report Type: 
  Country: None (occurrence: None)
  Receive Date: 20071219
  Receipt Date: 20071219
  Transmission Date: 20080405
  Serious: Yes (Hospitalization)
  Sender: FDA-Public Use
  Company Number: None

PATIENT
  Age: 24 Year
  Sex: Male
  Weight: 81.6475 kg

DRUGS (8)
  1. DISULFIRAM [Suspect]
     Dosage: 500MG PO
     Route: 048
  2. FENOFIBRATE [Concomitant]
  3. LITHIUM [Concomitant]
  4. NAVANE [Concomitant]
  5. LOVASTATIN [Concomitant]
  6. NIASPAN [Concomitant]
  7. METOPROLOL [Concomitant]
  8. LORAZEPAM [Concomitant]

REACTIONS (2)
  - CONDITION AGGRAVATED [None]
  - PSYCHOTIC DISORDER [None]
